FAERS Safety Report 4808221-0 (Version None)
Quarter: 2005Q4

REPORT INFORMATION
  Report Type: 
  Country: None (occurrence: None)
  Receive Date: 20051025
  Receipt Date: 20050923
  Transmission Date: 20060501
  Serious: Yes (Other)
  Sender: FDA-Public Use
  Company Number: US-BOEHRINGER INGELHEIM PHARMACEUTICALS, INC.-2005-BP-16936BP

PATIENT
  Age: 90 Year
  Sex: Male
  Weight: 79.4 kg

DRUGS (4)
  1. FLOMAX [Suspect]
     Route: 048
     Dates: start: 20040402, end: 20050316
  2. ASPIRIN [Concomitant]
  3. ZESTRIL [Concomitant]
  4. BETA BLOCKER [Concomitant]

REACTIONS (5)
  - BRADYCARDIA [None]
  - IRIDOCELE [None]
  - IRIS DISORDER [None]
  - MIOSIS [None]
  - POST PROCEDURAL COMPLICATION [None]
